FAERS Safety Report 19120407 (Version 1)
Quarter: 2021Q2

REPORT INFORMATION
  Report Type: Spontaneous
  Country: FI (occurrence: FI)
  Receive Date: 20210412
  Receipt Date: 20210412
  Transmission Date: 20210717
  Serious: Yes (Life-Threatening)
  Sender: FDA-Public Use
  Company Number: FI-ASTRAZENECA-2021A282115

PATIENT
  Age: 19923 Day
  Sex: Male
  Weight: 84 kg

DRUGS (8)
  1. RETAFYLLIN [Concomitant]
     Active Substance: THEOPHYLLINE
  2. ONBREZ [Concomitant]
     Active Substance: INDACATEROL
  3. SPIRIVA [Concomitant]
     Active Substance: TIOTROPIUM BROMIDE MONOHYDRATE
  4. DEVISOL [Concomitant]
  5. DAXAS [Suspect]
     Active Substance: ROFLUMILAST
     Indication: CHRONIC OBSTRUCTIVE PULMONARY DISEASE
     Route: 048
     Dates: start: 20210401, end: 20210406
  6. VFEND [Concomitant]
     Active Substance: VORICONAZOLE
  7. PRIMASPAN [Concomitant]
     Active Substance: ASPIRIN
  8. DAXAS [Suspect]
     Active Substance: ROFLUMILAST
     Indication: CHRONIC OBSTRUCTIVE PULMONARY DISEASE
     Dosage: EARLIER FOR SOME YEARS
     Route: 048

REACTIONS (2)
  - Chronic obstructive pulmonary disease [Not Recovered/Not Resolved]
  - Nausea [Not Recovered/Not Resolved]

NARRATIVE: CASE EVENT DATE: 20210401
